FAERS Safety Report 24704112 (Version 2)
Quarter: 2025Q1

REPORT INFORMATION
  Report Type: Report from Study
  Country: CN (occurrence: CN)
  Receive Date: 20241206
  Receipt Date: 20250107
  Transmission Date: 20250408
  Serious: Yes (Hospitalization)
  Sender: PFIZER
  Company Number: CN-PFIZER INC-PV202400157373

PATIENT
  Age: 71 Year
  Sex: Male
  Weight: 80 kg

DRUGS (5)
  1. ABROCITINIB [Suspect]
     Active Substance: ABROCITINIB
     Indication: Dermatitis atopic
     Dosage: 100 MG, 1X/DAY
     Route: 048
     Dates: start: 20241101, end: 2024
  2. HALOMETASONE [Concomitant]
     Active Substance: HALOMETASONE
     Indication: Type 2 diabetes mellitus
     Route: 048
     Dates: start: 200001
  3. HALOMETASONE [Concomitant]
     Active Substance: HALOMETASONE
     Indication: Dermatitis
     Dates: start: 20240820, end: 20241202
  4. OLMESARTAN MEDOXOMIL [Concomitant]
     Active Substance: OLMESARTAN MEDOXOMIL
     Indication: Hypertension
     Route: 048
     Dates: start: 200001
  5. COMPOUND POLYMYXIN B [Concomitant]
     Indication: Dermatitis
     Dates: start: 20241010, end: 20241202

REACTIONS (1)
  - Hypertension [Recovered/Resolved]

NARRATIVE: CASE EVENT DATE: 20241202
